FAERS Safety Report 6664703-0 (Version None)
Quarter: 2010Q1

REPORT INFORMATION
  Report Type: 
  Country: None (occurrence: None)
  Receive Date: 20100330
  Receipt Date: 20100215
  Transmission Date: 20100710
  Serious: Yes (Death)
  Sender: FDA-Public Use
  Company Number: 6058025

PATIENT
  Age: 59 Year
  Sex: Female

DRUGS (9)
  1. LEVOTHYROXINE SODIUM [Suspect]
     Indication: DRUG USE FOR UNKNOWN INDICATION
     Dosage: 25 MCG (25 MCG, -2) (1 DOSEAGE FORM 1 IN 1 D) ORAL
     Route: 048
     Dates: end: 20100118
  2. NAVELBINE [Suspect]
     Indication: DRUG USE FOR UNKNOWN INDICATION
     Dosage: (1 DOSAGE FORMS, 1 IN 1 M) INTRAVENOUS,
     Route: 042
     Dates: start: 20091124, end: 20091124
  3. NAVELBINE [Suspect]
     Indication: DRUG USE FOR UNKNOWN INDICATION
     Dosage: (1 DOSAGE FORMS, 1 IN 1 M) INTRAVENOUS,
     Route: 042
     Dates: start: 20091221, end: 20091221
  4. TAHOR (20 MG, TABLET) (ATORVASTATIN) [Suspect]
     Indication: DRUG USE FOR UNKNOWN INDICATION
     Dosage: 20 MG (20 MG, 1 IN 1 D) ORAL
     Route: 048
     Dates: end: 20100118
  5. TOPALGIC (50MG, 2 IN 1 D) [Suspect]
     Indication: DRUG USE FOR UNKNOWN INDICATION
     Dosage: 100 MG (50MG, 2 IN 1 D) ORAL
     Route: 048
     Dates: start: 20100111, end: 20100116
  6. ATARAX [Suspect]
     Indication: DRUG USE FOR UNKNOWN INDICATION
     Dosage: 25 MG (25MG, 1 IN 1 D) ORAL
     Route: 048
     Dates: start: 20100111, end: 20100115
  7. CORDARONE [Suspect]
     Indication: DRUG USE FOR UNKNOWN INDICATION
     Dosage: 1 DOSEAGE FORMS (1 DOSAGE FORMS, 1 IN 1 D) ORAL
     Route: 048
     Dates: end: 20100118
  8. FLECAINE 200MG (FLECAINIDE) [Suspect]
     Indication: DRUG USE FOR UNKNOWN INDICATION
     Dosage: 1 DOSEAGE FORMS (1 DOSAGE FORMS, 1 IN 1 D) ORAL
     Route: 048
     Dates: end: 20100118
  9. LASILIX (40 MG, 1 IN 1 D) [Suspect]
     Dosage: 40 MG (40 MG, 1 IN 1 D) ORAL
     Route: 048
     Dates: end: 20100118

REACTIONS (5)
  - FAECAL VOMITING [None]
  - INTESTINAL OBSTRUCTION [None]
  - MALIGNANT NEOPLASM PROGRESSION [None]
  - METASTASES TO LIVER [None]
  - RESPIRATORY DISTRESS [None]
